FAERS Safety Report 7742884-5 (Version None)
Quarter: 2011Q3

REPORT INFORMATION
  Report Type: 
  Country: None (occurrence: None)
  Receive Date: 20110830
  Receipt Date: 20110823
  Transmission Date: 20111222
  Serious: Yes (Other)
  Sender: FDA-Public Use
  Company Number: 2011SP021048

PATIENT
  Sex: Female

DRUGS (2)
  1. SAPHRIS [Suspect]
     Indication: FATIGUE
     Dosage: 5 MG;ONCE;BUCC
     Route: 002
     Dates: start: 20110401, end: 20110401
  2. SAPHRIS [Suspect]
     Indication: INTENTIONAL DRUG MISUSE
     Dosage: 5 MG;ONCE;BUCC
     Route: 002
     Dates: start: 20110401, end: 20110401

REACTIONS (4)
  - MOVEMENT DISORDER [None]
  - HYPOAESTHESIA [None]
  - FATIGUE [None]
  - SPEECH DISORDER [None]
